FAERS Safety Report 12574329 (Version 1)
Quarter: 2016Q3

REPORT INFORMATION
  Report Type: Spontaneous
  Country: SE (occurrence: SE)
  Receive Date: 20160720
  Receipt Date: 20160720
  Transmission Date: 20161109
  Serious: Yes (Hospitalization)
  Sender: FDA-Public Use
  Company Number: SE-TEVA-675697ISR

PATIENT
  Age: 26 Year
  Sex: Female

DRUGS (2)
  1. SERTRALINE [Suspect]
     Active Substance: SERTRALINE HYDROCHLORIDE
     Route: 065
  2. TRUXAL [Suspect]
     Active Substance: CHLORPROTHIXENE
     Route: 065

REACTIONS (4)
  - Suicidal ideation [Unknown]
  - Blood pressure decreased [Unknown]
  - Somnolence [Unknown]
  - Toxicity to various agents [Unknown]
